FAERS Safety Report 8535434-7 (Version None)
Quarter: 2012Q3

REPORT INFORMATION
  Report Type: 
  Country: None (occurrence: None)
  Receive Date: 20120725
  Receipt Date: 20120718
  Transmission Date: 20120928
  Serious: Yes (Other)
  Sender: FDA-Public Use
  Company Number: US-MSD-1207USA008482

PATIENT

DRUGS (3)
  1. REBETOL [Suspect]
     Indication: HEPATITIS C
     Dosage: UNK
     Dates: start: 20110819
  2. PEG-INTRON [Suspect]
     Indication: HEPATITIS C
     Dosage: UNK
     Dates: start: 20110819, end: 20120713
  3. VICTRELIS [Suspect]
     Indication: HEPATITIS C
     Dosage: UNK
     Dates: start: 20110819

REACTIONS (5)
  - DYSGEUSIA [None]
  - ANAEMIA [None]
  - WEIGHT DECREASED [None]
  - EARLY SATIETY [None]
  - DRY MOUTH [None]
